FAERS Safety Report 5664307-2 (Version None)
Quarter: 2008Q1

REPORT INFORMATION
  Report Type: 
  Country: None (occurrence: None)
  Receive Date: 20080312
  Receipt Date: 20080306
  Transmission Date: 20080703
  Serious: Yes (Other)
  Sender: FDA-Public Use
  Company Number: 18616

PATIENT
  Age: 64 Year
  Sex: Female
  Weight: 130.8627 kg

DRUGS (3)
  1. CARBOPLATIN [Suspect]
     Indication: FALLOPIAN TUBE CANCER
     Dosage: 125 MG WEEKLY IV
     Route: 040
  2. CARBOPLATIN [Suspect]
     Indication: VULVAL DISORDER
     Dosage: 125 MG WEEKLY IV
     Route: 040
  3. TAXOL [Concomitant]

REACTIONS (3)
  - BURNING SENSATION [None]
  - FLUSHING [None]
  - NAUSEA [None]
